FAERS Safety Report 6130485-4 (Version None)
Quarter: 2009Q1

REPORT INFORMATION
  Report Type: 
  Country: None (occurrence: None)
  Receive Date: 20090324
  Receipt Date: 20090317
  Transmission Date: 20090719
  Serious: Yes (Life-Threatening, Hospitalization)
  Sender: FDA-Public Use
  Company Number: US-GILEAD-2009-0020918

PATIENT
  Sex: Male
  Weight: 88.076 kg

DRUGS (12)
  1. LETAIRIS [Suspect]
     Indication: PULMONARY ARTERIAL HYPERTENSION
     Route: 048
     Dates: start: 20080812, end: 20081113
  2. OXYGEN [Concomitant]
  3. COUMADIN [Concomitant]
     Indication: MITRAL VALVE REPLACEMENT
  4. SPIRIVA [Concomitant]
     Indication: CHRONIC OBSTRUCTIVE PULMONARY DISEASE
  5. FORADIL [Concomitant]
     Indication: CHRONIC OBSTRUCTIVE PULMONARY DISEASE
  6. THEOPHYLLINE [Concomitant]
     Indication: CHRONIC OBSTRUCTIVE PULMONARY DISEASE
  7. DIOVAN [Concomitant]
     Indication: HYPERTENSION
  8. LASIX [Concomitant]
     Indication: CARDIAC FAILURE CONGESTIVE
  9. LIPITOR [Concomitant]
     Indication: CORONARY ARTERY DISEASE
  10. DIGOXIN [Concomitant]
     Indication: CARDIAC FAILURE CONGESTIVE
  11. NIASPAN [Concomitant]
     Indication: HYPERCHOLESTEROLAEMIA
  12. METFORMIN [Concomitant]
     Indication: DIABETES MELLITUS

REACTIONS (1)
  - RESPIRATORY FAILURE [None]
